FAERS Safety Report 6398755-2 (Version None)
Quarter: 2009Q4

REPORT INFORMATION
  Report Type: 
  Country: None (occurrence: None)
  Receive Date: 20091007
  Receipt Date: 20090923
  Transmission Date: 20100525
  Serious: Yes (Other)
  Sender: FDA-Public Use
  Company Number: ENT 2009-0169

PATIENT
  Age: 80 Year
  Sex: Female

DRUGS (9)
  1. COMTAN [Suspect]
     Indication: PARKINSON'S DISEASE
     Dosage: 900 MG ORAL
     Route: 048
     Dates: start: 20080730, end: 20081001
  2. LEVODOPA BENSERAZINE HYDROCHLORIDE [Concomitant]
  3. PRORENAL [Concomitant]
  4. RIVOTRIL [Concomitant]
  5. TRYPTANOL [Concomitant]
  6. EVISTA [Concomitant]
  7. BONALON [Concomitant]
  8. PURSENNID [Concomitant]
  9. ALOSENN [Concomitant]

REACTIONS (2)
  - CONSTIPATION [None]
  - HALLUCINATION, VISUAL [None]
